FAERS Safety Report 5585530-1 (Version None)
Quarter: 2008Q1

REPORT INFORMATION
  Report Type: 
  Country: None (occurrence: None)
  Receive Date: 20080109
  Receipt Date: 20080103
  Transmission Date: 20080703
  Serious: Yes (Other)
  Sender: FDA-Public Use
  Company Number: B0359670A

PATIENT
  Age: 16 Year
  Sex: Female

DRUGS (1)
  1. SEROXAT [Suspect]
     Route: 065
     Dates: start: 20000320

REACTIONS (6)
  - AGITATION [None]
  - DRUG WITHDRAWAL SYNDROME [None]
  - INFLUENZA [None]
  - PARAESTHESIA [None]
  - PARANOIA [None]
  - SUICIDAL BEHAVIOUR [None]
